FAERS Safety Report 7451649-3 (Version None)
Quarter: 2011Q2

REPORT INFORMATION
  Report Type: 
  Country: None (occurrence: None)
  Receive Date: 20110502
  Receipt Date: 20100719
  Transmission Date: 20111010
  Serious: No
  Sender: FDA-Public Use
  Company Number: US-ASTRAZENECA-2010SE33469

PATIENT
  Sex: Female

DRUGS (5)
  1. CELEXA [Concomitant]
     Indication: DEPRESSION
  2. ZOCOR [Concomitant]
  3. TEMAZEPAM [Concomitant]
  4. NEXIUM [Suspect]
     Indication: ULCER
     Route: 048
     Dates: start: 20100712
  5. LISINOPRIL [Concomitant]
     Indication: HYPERTENSION

REACTIONS (2)
  - INSOMNIA [None]
  - ANXIETY [None]
